FAERS Safety Report 10376565 (Version 1)
Quarter: 2014Q3

REPORT INFORMATION
  Report Type: Spontaneous
  Country: US (occurrence: None)
  Receive Date: 20140807
  Receipt Date: 20140807
  Transmission Date: 20150326
  Serious: Yes (Congenital Anomaly, Other)
  Sender: FDA-Public Use
  Company Number: 2014AP003800

PATIENT
  Age: 0 Day
  Sex: Male

DRUGS (1)
  1. PAXIL [Suspect]
     Active Substance: PAROXETINE HYDROCHLORIDE

REACTIONS (6)
  - Aortic valve stenosis [None]
  - Limb malformation [None]
  - Aortic valve incompetence [None]
  - Foetal exposure during pregnancy [None]
  - Aortic valve disease [None]
  - Maternal drugs affecting foetus [None]

NARRATIVE: CASE EVENT DATE: 20010722
